FAERS Safety Report 9969776 (Version 1)
Quarter: 2014Q1

REPORT INFORMATION
  Report Type: Spontaneous
  Country: US (occurrence: None)
  Receive Date: 20140304
  Receipt Date: 20140304
  Transmission Date: 20141002
  Serious: No
  Sender: FDA-Public Use
  Company Number: None

PATIENT
  Age: 56 Year
  Sex: Female
  Weight: 63.5 kg

DRUGS (5)
  1. HYDROCODONE ACETAMINOPHEN [Suspect]
     Indication: PAIN
     Dosage: 4-6HRS, PO.
     Route: 048
     Dates: start: 20130110, end: 20130110
  2. FIONNAL [Concomitant]
  3. TOPROL [Concomitant]
  4. VALIUM [Concomitant]
  5. VICODIN [Concomitant]

REACTIONS (3)
  - Diarrhoea [None]
  - Vomiting [None]
  - Rash [None]
